FAERS Safety Report 12470728 (Version 1)
Quarter: 2016Q2

REPORT INFORMATION
  Report Type: Report from Study
  Country: CA (occurrence: CA)
  Receive Date: 20160616
  Receipt Date: 20160616
  Transmission Date: 20160815
  Serious: Yes (Other)
  Sender: FDA-Public Use
  Company Number: CA-AMGEN-CANSL2016075453

PATIENT
  Age: 78 Year
  Sex: Female

DRUGS (7)
  1. ATIVAN [Concomitant]
     Active Substance: LORAZEPAM
  2. CALCIUM [Concomitant]
     Active Substance: CALCIUM
  3. ZOPICLONE [Concomitant]
     Active Substance: ZOPICLONE
  4. PROLIA [Suspect]
     Active Substance: DENOSUMAB
     Indication: PRODUCT USED FOR UNKNOWN INDICATION
     Dosage: 60 MG/ML, UNK
     Route: 065
     Dates: start: 20140306
  5. SERTRALINE [Concomitant]
     Active Substance: SERTRALINE HYDROCHLORIDE
  6. IRON [Concomitant]
     Active Substance: IRON
  7. VITAMIN D [Concomitant]
     Active Substance: CHOLECALCIFEROL

REACTIONS (10)
  - Gallbladder operation [Unknown]
  - Dysphagia [Unknown]
  - Body height decreased [Unknown]
  - Gastrointestinal disorder [Unknown]
  - Pertussis [Unknown]
  - Diverticulitis [Unknown]
  - Hernia repair [Unknown]
  - Dyspepsia [Unknown]
  - Cataract operation [Unknown]
  - Visual impairment [Unknown]

NARRATIVE: CASE EVENT DATE: 2015
